FAERS Safety Report 6070861-1 (Version None)
Quarter: 2009Q1

REPORT INFORMATION
  Report Type: 
  Country: None (occurrence: None)
  Receive Date: 20090209
  Receipt Date: 20081007
  Transmission Date: 20090719
  Serious: No
  Sender: FDA-Public Use
  Company Number: A0750818A

PATIENT
  Age: 34 Year
  Sex: Male

DRUGS (2)
  1. PAXIL [Suspect]
     Indication: ANXIETY
     Dosage: 40MG PER DAY
     Route: 048
     Dates: start: 20080401, end: 20080901
  2. XANAX [Concomitant]

REACTIONS (5)
  - DEREALISATION [None]
  - DIZZINESS [None]
  - DYSKINESIA [None]
  - FEELING OF RELAXATION [None]
  - NIGHTMARE [None]
